FAERS Safety Report 5403444-4 (Version None)
Quarter: 2007Q3

REPORT INFORMATION
  Report Type: 
  Country: None (occurrence: None)
  Receive Date: 20070713
  Receipt Date: 20061114
  Transmission Date: 20080115
  Serious: Yes (Life-Threatening, Hospitalization)
  Sender: FDA-Public Use
  Company Number: US-JNJFOC-20061103841

PATIENT
  Age: 44 Year
  Sex: Female
  Weight: 72.5755 kg

DRUGS (2)
  1. ORTHO EVRA [Suspect]
     Indication: CONTRACEPTION
     Dosage: 1 IN 1 WEEK
     Dates: start: 20050904, end: 20050925
  2. ORTHO EVRA [Suspect]
     Indication: MENSTRUATION IRREGULAR
     Dosage: 1 IN 1 WEEK
     Dates: start: 20050904, end: 20050925

REACTIONS (1)
  - PULMONARY EMBOLISM [None]
